FAERS Safety Report 4837137-9 (Version None)
Quarter: 2005Q4

REPORT INFORMATION
  Report Type: 
  Country: None (occurrence: None)
  Receive Date: 20051122
  Receipt Date: 20051110
  Transmission Date: 20060501
  Serious: Yes (Other)
  Sender: FDA-Public Use
  Company Number: 2005156016

PATIENT
  Age: 3 Month
  Sex: Male

DRUGS (2)
  1. ZYRTEC [Suspect]
     Indication: ILL-DEFINED DISORDER
     Dosage: UNKNOWN
     Route: 065
  2. CORTISONE ACETATE [Suspect]
     Indication: ILL-DEFINED DISORDER
     Dosage: UNKNOWN
     Route: 065

REACTIONS (6)
  - ABNORMAL BEHAVIOUR [None]
  - EAR INFECTION [None]
  - IRRITABILITY [None]
  - RESTLESSNESS [None]
  - SWELLING [None]
  - TREMOR [None]
